FAERS Safety Report 5079592-8 (Version None)
Quarter: 2006Q3

REPORT INFORMATION
  Report Type: 
  Country: None (occurrence: None)
  Receive Date: 20060720
  Receipt Date: 20050809
  Transmission Date: 20061208
  Serious: Yes (Other)
  Sender: FDA-Public Use
  Company Number: 2005092340

PATIENT
  Age: 60 Year
  Sex: Female
  Weight: 99.7913 kg

DRUGS (11)
  1. CELEBREX [Suspect]
     Indication: ARTHRALGIA
     Dosage: UNKNOWN (UNK, 2 IN 1 D), ORAL
     Route: 048
  2. LIPITOR [Concomitant]
  3. ZETIA [Concomitant]
  4. ALTACE [Concomitant]
  5. ATENOLOL [Concomitant]
  6. PREMARIN [Concomitant]
  7. NEXIUM [Concomitant]
  8. RANITIDINE HCL [Concomitant]
  9. SYNTHROID [Concomitant]
  10. CYCLOBENZAPRINE HCL [Concomitant]
  11. DIURETICS (DIURETICS) [Concomitant]

REACTIONS (4)
  - ANGINA PECTORIS [None]
  - CARDIAC VALVE DISEASE [None]
  - CORONARY ARTERY DISEASE [None]
  - CORONARY ARTERY OCCLUSION [None]
